FAERS Safety Report 15452892 (Version 2)
Quarter: 2018Q4

REPORT INFORMATION
  Report Type: Spontaneous
  Country: BR (occurrence: BR)
  Receive Date: 20181001
  Receipt Date: 20181203
  Transmission Date: 20190204
  Serious: Yes (Other)
  Sender: FDA-Public Use
  Company Number: BR-JNJFOC-20180933186

PATIENT
  Age: 46 Year
  Sex: Female

DRUGS (6)
  1. XARELTO [Suspect]
     Active Substance: RIVAROXABAN
     Indication: PELVIC VENOUS THROMBOSIS
     Dosage: 20 MG
     Route: 048
     Dates: start: 20181001
  2. XARELTO [Suspect]
     Active Substance: RIVAROXABAN
     Indication: DEEP VEIN THROMBOSIS
     Route: 048
     Dates: start: 20180909, end: 20180930
  3. XARELTO [Suspect]
     Active Substance: RIVAROXABAN
     Indication: THROMBOSIS
     Route: 048
     Dates: start: 20180909, end: 20180930
  4. XARELTO [Suspect]
     Active Substance: RIVAROXABAN
     Indication: DEEP VEIN THROMBOSIS
     Dosage: 20 MG
     Route: 048
     Dates: start: 20181001
  5. XARELTO [Suspect]
     Active Substance: RIVAROXABAN
     Indication: THROMBOSIS
     Dosage: 20 MG
     Route: 048
     Dates: start: 20181001
  6. XARELTO [Suspect]
     Active Substance: RIVAROXABAN
     Indication: PELVIC VENOUS THROMBOSIS
     Route: 048
     Dates: start: 20180909, end: 20180930

REACTIONS (2)
  - Deep vein thrombosis [Not Recovered/Not Resolved]
  - Pelvic venous thrombosis [Not Recovered/Not Resolved]

NARRATIVE: CASE EVENT DATE: 20180921
